FAERS Safety Report 23197885 (Version 1)
Quarter: 2023Q4

REPORT INFORMATION
  Report Type: Spontaneous
  Country: DE (occurrence: DE)
  Receive Date: 20231117
  Receipt Date: 20231117
  Transmission Date: 20240109
  Serious: Yes (Life-Threatening, Other)
  Sender: FDA-Public Use
  Company Number: None

PATIENT
  Age: 31 Year
  Sex: Male
  Weight: 154 kg

DRUGS (1)
  1. QUETIAPINE [Suspect]
     Active Substance: QUETIAPINE
     Indication: Schizophrenia
     Dosage: DIFFERENT STRENGTHS TAKEN 800 MG, 600 MG, 400 MG, CURRENTLY 300 MG
     Route: 065
     Dates: start: 20091001

REACTIONS (22)
  - Cardiovascular disorder [Unknown]
  - Cerebral disorder [Not Recovered/Not Resolved]
  - Immune system disorder [Not Recovered/Not Resolved]
  - Asthenia [Not Recovered/Not Resolved]
  - Adverse reaction [Not Recovered/Not Resolved]
  - Drug dependence [Unknown]
  - Insomnia [Unknown]
  - Respiration abnormal [Unknown]
  - Cardiac discomfort [Unknown]
  - Unevaluable event [Unknown]
  - Nervous system disorder [Unknown]
  - Movement disorder [Unknown]
  - Mental disorder [Unknown]
  - Dry throat [Unknown]
  - Nasopharyngitis [Unknown]
  - Loss of personal independence in daily activities [Unknown]
  - Illusion [Unknown]
  - Pigmentation disorder [Unknown]
  - Restlessness [Unknown]
  - Pyrexia [Unknown]
  - Dyspnoea [Unknown]
  - Somnolence [Unknown]

NARRATIVE: CASE EVENT DATE: 20110101
